FAERS Safety Report 10586413 (Version 4)
Quarter: 2015Q1

REPORT INFORMATION
  Report Type: Report from Study
  Country: GB (occurrence: GB)
  Receive Date: 20141117
  Receipt Date: 20150330
  Transmission Date: 20150720
  Serious: Yes (Hospitalization)
  Sender: FDA-Public Use
  Company Number: GB-ROCHE-1429134

PATIENT
  Age: 12 Year
  Sex: Male
  Weight: 41.65 kg

DRUGS (7)
  1. COTRIMOXAZOLE [Concomitant]
     Active Substance: SULFAMETHOXAZOLE\TRIMETHOPRIM
     Route: 065
     Dates: start: 20121224
  2. BEVACIZUMAB [Suspect]
     Active Substance: BEVACIZUMAB
     Indication: RHABDOMYOSARCOMA
     Dosage: 7.5MG/KG ON DAY 1 OF EACH CYCLE
     Route: 042
  3. VINORELBINE [Suspect]
     Active Substance: VINORELBINE\VINORELBINE TARTRATE
     Indication: SOFT TISSUE SARCOMA
     Route: 065
  4. VINORELBINE [Suspect]
     Active Substance: VINORELBINE\VINORELBINE TARTRATE
     Indication: RHABDOMYOSARCOMA
     Dosage: LAST DOSE PRIOR TO THE SAE 20/JUN/2014
     Route: 042
     Dates: start: 20140606
  5. BEVACIZUMAB [Suspect]
     Active Substance: BEVACIZUMAB
     Indication: SOFT TISSUE SARCOMA
     Dosage: MAINTENANCE TREATMENT?LAST DOSE PRIOR TO THE SAE 20/JUN/2014
     Route: 042
     Dates: start: 20140606
  6. CYCLOPHOSPHAMIDE. [Suspect]
     Active Substance: CYCLOPHOSPHAMIDE
     Indication: RHABDOMYOSARCOMA
     Dosage: LAST DOSE PRIOR TO THE SAE 30/JUN/2014
     Route: 048
     Dates: start: 20140606
  7. CYCLOPHOSPHAMIDE. [Suspect]
     Active Substance: CYCLOPHOSPHAMIDE
     Indication: SOFT TISSUE SARCOMA
     Route: 065

REACTIONS (1)
  - Pyrexia [Not Recovered/Not Resolved]

NARRATIVE: CASE EVENT DATE: 20140630
